FAERS Safety Report 24602954 (Version 2)
Quarter: 2024Q4

REPORT INFORMATION
  Report Type: Report from Study
  Country: DE (occurrence: DE)
  Receive Date: 20241111
  Receipt Date: 20241112
  Transmission Date: 20250115
  Serious: No
  Sender: TRAVERE THERAPEUTICS
  Company Number: DE-Vifor (International) Inc.-VIT-2024-07829

PATIENT
  Age: 49 Year
  Sex: Male
  Weight: 78 kg

DRUGS (4)
  1. FILSPARI [Suspect]
     Active Substance: SPARSENTAN
     Indication: IgA nephropathy
     Dosage: DAILY
     Route: 048
     Dates: start: 20240504, end: 20240517
  2. FILSPARI [Suspect]
     Active Substance: SPARSENTAN
     Dosage: DAILY
     Route: 048
     Dates: start: 20240829
  3. DAPAGLIFLOZIN [Concomitant]
     Active Substance: DAPAGLIFLOZIN
     Indication: IgA nephropathy
     Route: 050
  4. LERCANIDIPINE [Concomitant]
     Active Substance: LERCANIDIPINE
     Indication: Hypertension
     Route: 050

REACTIONS (4)
  - Conjunctivitis [Recovered/Resolved]
  - Ocular hyperaemia [Recovered/Resolved]
  - Eye swelling [Recovered/Resolved]
  - Eye pruritus [Recovered/Resolved]

NARRATIVE: CASE EVENT DATE: 20240829
